FAERS Safety Report 20228342 (Version 2)
Quarter: 2022Q1

REPORT INFORMATION
  Report Type: Spontaneous
  Country: US (occurrence: US)
  Receive Date: 20211224
  Receipt Date: 20220214
  Transmission Date: 20220423
  Serious: Yes (Other)
  Sender: FDA-Public Use
  Company Number: US-PFIZER INC-2019417632

PATIENT
  Age: 85 Year
  Sex: Female

DRUGS (1)
  1. BOSULIF [Suspect]
     Active Substance: BOSUTINIB MONOHYDRATE
     Indication: Chronic myeloid leukaemia (in remission)
     Dosage: 300 MG, DAILY (3 TABS)

REACTIONS (6)
  - Type 2 diabetes mellitus [Unknown]
  - Hypothyroidism [Unknown]
  - Haemophilus infection [Unknown]
  - Chronic obstructive pulmonary disease [Unknown]
  - Iron deficiency anaemia [Unknown]
  - Coronary artery disease [Unknown]
